FAERS Safety Report 13883514 (Version 1)
Quarter: 2017Q3

REPORT INFORMATION
  Report Type: Report from Study
  Country: EG (occurrence: EG)
  Receive Date: 20170819
  Receipt Date: 20170819
  Transmission Date: 20171127
  Serious: Yes (Death, Hospitalization, Other)
  Sender: FDA-Public Use
  Company Number: EG-ROCHE-1977590

PATIENT

DRUGS (3)
  1. PEG-INTERFERON ALFA 2A [Suspect]
     Active Substance: PEGINTERFERON ALFA-2A
     Indication: CHRONIC HEPATITIS C
     Route: 065
  2. RIBAVIRIN. [Suspect]
     Active Substance: RIBAVIRIN
     Indication: CHRONIC HEPATITIS C
     Route: 065
  3. SOFOSBUVIR [Suspect]
     Active Substance: SOFOSBUVIR
     Indication: CHRONIC HEPATITIS C
     Route: 048

REACTIONS (14)
  - Insomnia [Unknown]
  - Renal impairment [Unknown]
  - Lymphoma [Unknown]
  - Blood disorder [Unknown]
  - Death [Fatal]
  - Myalgia [Unknown]
  - Headache [Unknown]
  - Vomiting [Unknown]
  - Pruritus [Unknown]
  - Hepatocellular carcinoma [Unknown]
  - Hepatic failure [Unknown]
  - Anxiety [Unknown]
  - Myocardial ischaemia [Unknown]
  - Anaemia [Unknown]
